FAERS Safety Report 9748115 (Version 1)
Quarter: 2013Q4

REPORT INFORMATION
  Report Type: Spontaneous
  Country: US (occurrence: US)
  Receive Date: 20131212
  Receipt Date: 20131212
  Transmission Date: 20140711
  Serious: Yes (Other)
  Sender: FDA-Public Use
  Company Number: US-PFIZER INC-2013350877

PATIENT
  Age: 57 Year
  Sex: Male

DRUGS (2)
  1. XALKORI [Suspect]
     Dosage: 500 MG, DAILY
  2. XALKORI [Suspect]
     Dosage: 250 MG, 1X/DAY
     Dates: start: 201311

REACTIONS (2)
  - Electrocardiogram QT prolonged [Unknown]
  - Bronchitis [Unknown]
